FAERS Safety Report 8801761 (Version 1)
Quarter: 2012Q4

REPORT INFORMATION
  Report Type: Report from Study
  Country: US (occurrence: US)
  Receive Date: 20120921
  Receipt Date: 20120921
  Transmission Date: 20130627
  Serious: Yes (Other)
  Sender: FDA-Public Use
  Company Number: US-ABBOTT-12P-163-0939734-00

PATIENT
  Sex: Female
  Weight: 56.3 kg

DRUGS (3)
  1. HUMIRA 40 MG/0.8 ML PEN [Suspect]
     Indication: CROHN^S DISEASE
     Dates: start: 201205
  2. HUMIRA 40 MG/0.8 ML PEN [Suspect]
     Dosage: Day 15, 80 mg
  3. HUMIRA 40 MG/0.8 ML PEN [Suspect]

REACTIONS (5)
  - Intestinal perforation [Unknown]
  - Intestinal ischaemia [Unknown]
  - Pain [Unknown]
  - Diarrhoea [Unknown]
  - Gastrointestinal necrosis [Unknown]
